FAERS Safety Report 14541535 (Version 1)
Quarter: 2018Q1

REPORT INFORMATION
  Report Type: Spontaneous
  Country: US (occurrence: US)
  Receive Date: 20180216
  Receipt Date: 20180216
  Transmission Date: 20180509
  Serious: Yes (Other)
  Sender: FDA-Public Use
  Company Number: US-OTSUKA-DJ20101126

PATIENT

DRUGS (4)
  1. CITALOPRAM [Suspect]
     Active Substance: CITALOPRAM HYDROBROMIDE
     Indication: DEPRESSION
  2. ABILIFY [Suspect]
     Active Substance: ARIPIPRAZOLE
     Indication: BIPOLAR DISORDER
     Route: 065
     Dates: start: 201001, end: 20100221
  3. ABILIFY [Suspect]
     Active Substance: ARIPIPRAZOLE
     Indication: DEPRESSION
  4. CITALOPRAM [Suspect]
     Active Substance: CITALOPRAM HYDROBROMIDE
     Indication: BIPOLAR DISORDER
     Route: 065

REACTIONS (11)
  - Somnolence [Unknown]
  - Drooling [Unknown]
  - Swollen tongue [Unknown]
  - Urinary tract infection [Unknown]
  - Insomnia [Unknown]
  - Dyspnoea [Unknown]
  - Dizziness [Unknown]
  - Confusional state [Unknown]
  - Gait disturbance [Unknown]
  - Eating disorder [Unknown]
  - Lip swelling [Unknown]
